FAERS Safety Report 9384090 (Version 2)
Quarter: 2013Q3

REPORT INFORMATION
  Report Type: Spontaneous
  Country: US (occurrence: US)
  Receive Date: 20130705
  Receipt Date: 20130822
  Transmission Date: 20140515
  Serious: Yes (Hospitalization)
  Sender: FDA-Public Use
  Company Number: US-JNJFOC-20130618906

PATIENT
  Age: 86 Year
  Sex: Female

DRUGS (2)
  1. XARELTO [Suspect]
     Indication: FEMUR FRACTURE
     Route: 048
  2. XARELTO [Suspect]
     Indication: POSTOPERATIVE CARE
     Route: 048

REACTIONS (1)
  - Adrenal haemorrhage [Recovered/Resolved]
